FAERS Safety Report 5726942-2 (Version None)
Quarter: 2008Q2

REPORT INFORMATION
  Report Type: 
  Country: None (occurrence: None)
  Receive Date: 20080501
  Receipt Date: 20070615
  Transmission Date: 20081010
  Serious: Yes (Other)
  Sender: FDA-Public Use
  Company Number: PHEH2006US05770

PATIENT
  Age: 64 Year
  Sex: Female

DRUGS (3)
  1. DIOVAN HCT [Suspect]
     Indication: HYPERTENSION
     Dosage: 160MGVAL/25MG HCT, QD ; 80MG VAL/12.5MG HCT, BID
     Dates: start: 20040101, end: 20050501
  2. DIOVAN HCT [Suspect]
     Indication: HYPERTENSION
     Dosage: 160MGVAL/25MG HCT, QD ; 80MG VAL/12.5MG HCT, BID
     Dates: start: 20050501
  3. ADVAIR DISKUS 100/50 [Concomitant]

REACTIONS (4)
  - ASTHENIA [None]
  - DIZZINESS [None]
  - HYPERSENSITIVITY [None]
  - HYPOTENSION [None]
